FAERS Safety Report 9435157 (Version 1)
Quarter: 2013Q3

REPORT INFORMATION
  Report Type: Spontaneous
  Country: US (occurrence: US)
  Receive Date: 20130801
  Receipt Date: 20130801
  Transmission Date: 20140515
  Serious: Yes (Other)
  Sender: FDA-Public Use
  Company Number: US-BRACCO-009726

PATIENT
  Sex: Female
  Weight: 48 kg

DRUGS (1)
  1. KINEVAC [Suspect]
     Indication: HEPATOBILIARY SCAN
     Route: 042
     Dates: start: 20130729, end: 20130729

REACTIONS (3)
  - Convulsion [Recovered/Resolved]
  - Dyspnoea [Recovered/Resolved]
  - Nausea [Recovered/Resolved]
